FAERS Safety Report 9519116 (Version 2)
Quarter: 2013Q3

REPORT INFORMATION
  Report Type: Report from Study
  Country: BR (occurrence: BR)
  Receive Date: 20130912
  Receipt Date: 20130912
  Transmission Date: 20140515
  Serious: Yes (Other)
  Sender: FDA-Public Use
  Company Number: PHHY2013BR066824

PATIENT
  Sex: Female
  Weight: 43 kg

DRUGS (2)
  1. RITALIN LA [Suspect]
     Indication: ATTENTION DEFICIT/HYPERACTIVITY DISORDER
     Dosage: 1 DF, QD
     Dates: start: 201304, end: 201306
  2. RISPERIDONE [Concomitant]
     Indication: RESTLESSNESS
     Dosage: 2 DF (1 TABLET IN THE MORNING, 1 TABLET IN THE AFTERNOON), QD
     Dates: start: 201207

REACTIONS (9)
  - Suicidal ideation [Recovering/Resolving]
  - Anger [Recovering/Resolving]
  - Aggression [Recovering/Resolving]
  - Learning disorder [Recovering/Resolving]
  - Abnormal behaviour [Recovering/Resolving]
  - Agitation [Recovering/Resolving]
  - Nervousness [Recovering/Resolving]
  - Disturbance in attention [Recovering/Resolving]
  - Drug ineffective [Unknown]
